APPROVED DRUG PRODUCT: CETIRIZINE HYDROCHLORIDE ALLERGY
Active Ingredient: CETIRIZINE HYDROCHLORIDE
Strength: 10MG
Dosage Form/Route: TABLET;ORAL
Application: A078780 | Product #004
Applicant: AMNEAL PHARMACEUTICALS NY LLC
Approved: Jan 21, 2010 | RLD: No | RS: No | Type: OTC